FAERS Safety Report 11155119 (Version 2)
Quarter: 2015Q2

REPORT INFORMATION
  Report Type: Spontaneous
  Country: PT (occurrence: None)
  Receive Date: 20150529
  Receipt Date: 20150629
  Transmission Date: 20150821
  Serious: Yes (Disabling)
  Sender: FDA-Public Use
  Company Number: DEP_02952_2015

PATIENT
  Age: 60 Year
  Sex: Female
  Weight: 75 kg

DRUGS (4)
  1. PALEXIA [Suspect]
     Active Substance: TAPENTADOL HYDROCHLORIDE
     Indication: ARTHRALGIA
     Route: 048
     Dates: start: 20150411, end: 20150430
  2. DAFLON [Concomitant]
     Active Substance: DIOSMIN\HESPERIDIN
  3. ESCITALOPRAM [Concomitant]
     Active Substance: ESCITALOPRAM OXALATE
  4. METFORMIN [Concomitant]
     Active Substance: METFORMIN HYDROCHLORIDE

REACTIONS (7)
  - Decreased appetite [None]
  - Tachycardia [None]
  - Tremor [None]
  - Eye swelling [None]
  - Insomnia [None]
  - Fatigue [None]
  - Amnesia [None]

NARRATIVE: CASE EVENT DATE: 201504
